FAERS Safety Report 7319205-5 (Version None)
Quarter: 2011Q1

REPORT INFORMATION
  Report Type: 
  Country: None (occurrence: None)
  Receive Date: 20110228
  Receipt Date: 20110214
  Transmission Date: 20110831
  Serious: Yes (Hospitalization)
  Sender: FDA-Public Use
  Company Number: PHFR2011GB01308

PATIENT
  Sex: Female

DRUGS (3)
  1. CLOZARIL [Suspect]
     Indication: SCHIZOPHRENIA
     Dosage: UNK
     Route: 048
     Dates: start: 20090130
  2. CLOZARIL [Suspect]
     Dosage: UNK
  3. NORADRENALINE [Concomitant]

REACTIONS (3)
  - COMA [None]
  - GASTROINTESTINAL HAEMORRHAGE [None]
  - LUNG CONSOLIDATION [None]
